FAERS Safety Report 8062085-3 (Version None)
Quarter: 2012Q1

REPORT INFORMATION
  Report Type: 
  Country: None (occurrence: None)
  Receive Date: 20120120
  Receipt Date: 20120120
  Transmission Date: 20120608
  Serious: Yes (Hospitalization)
  Sender: FDA-Public Use
  Company Number: None

PATIENT
  Age: 73 Year
  Sex: Male
  Weight: 84 kg

DRUGS (3)
  1. ASPIRIN [Suspect]
     Indication: PERIPHERAL VASCULAR DISORDER
     Dosage: 81 MG EVERY DAY PO
     Route: 048
     Dates: start: 20111212, end: 20120118
  2. ASPIRIN [Suspect]
     Indication: STENT PLACEMENT
     Dosage: 81 MG EVERY DAY PO
     Route: 048
     Dates: start: 20111212, end: 20120118
  3. WARFARIN SODIUM [Suspect]
     Indication: AORTIC VALVE DISEASE
     Dosage: 7.5 MG EVERY DAY PO
     Route: 048
     Dates: start: 20061001

REACTIONS (2)
  - GASTROINTESTINAL HAEMORRHAGE [None]
  - HAEMORRHAGE [None]
